FAERS Safety Report 5939151-9 (Version None)
Quarter: 2008Q4

REPORT INFORMATION
  Report Type: 
  Country: None (occurrence: None)
  Receive Date: 20081103
  Receipt Date: 20080801
  Transmission Date: 20090506
  Serious: No
  Sender: FDA-Public Use
  Company Number: US-TYCO HEALTHCARE/MALLINCKRODT-T200801236

PATIENT

DRUGS (6)
  1. THALLOUS CHLORIDE TL 201 [Suspect]
     Indication: SCAN MYOCARDIAL PERFUSION
     Dosage: UNK, SINGLE
     Route: 042
     Dates: start: 20080301, end: 20080301
  2. LOPRESSOR [Concomitant]
     Indication: BLOOD PRESSURE
     Dosage: 50 MG, QD (QPM)
     Route: 048
  3. LOPRESSOR [Concomitant]
     Dosage: 25 MG, QD (QAM)
     Route: 048
  4. VERAPAMIL [Concomitant]
     Indication: BLOOD PRESSURE
     Dosage: 240 MG, QD
     Route: 048
  5. CRESTOR [Concomitant]
     Indication: BLOOD PRESSURE
     Dosage: 10 MG, QD
     Route: 048
  6. ISOSORB                            /00586302/ [Concomitant]
     Indication: BLOOD PRESSURE
     Dosage: 30 MG, QD
     Route: 048

REACTIONS (1)
  - BLOOD CREATININE INCREASED [None]
